FAERS Safety Report 24714384 (Version 2)
Quarter: 2024Q4

REPORT INFORMATION
  Report Type: Spontaneous
  Country: JP (occurrence: JP)
  Receive Date: 20241209
  Receipt Date: 20241226
  Transmission Date: 20250114
  Serious: Yes (Other)
  Sender: ALEXION PHARMACEUTICALS
  Company Number: JP-ASTRAZENECA-240138650_013020_P_1

PATIENT
  Age: 74 Year
  Weight: 43 kg

DRUGS (24)
  1. OSIMERTINIB [Suspect]
     Active Substance: OSIMERTINIB
     Indication: Non-small cell lung cancer
     Dosage: 80 MILLIGRAM, QD
  2. OSIMERTINIB [Suspect]
     Active Substance: OSIMERTINIB
     Dosage: 80 MILLIGRAM, QD
     Route: 048
  3. OSIMERTINIB [Suspect]
     Active Substance: OSIMERTINIB
     Dosage: 80 MILLIGRAM, QD
  4. OSIMERTINIB [Suspect]
     Active Substance: OSIMERTINIB
     Dosage: 80 MILLIGRAM, QD
     Route: 048
  5. OSIMERTINIB [Suspect]
     Active Substance: OSIMERTINIB
     Dosage: 40 MILLIGRAM, QD
     Route: 048
  6. OSIMERTINIB [Suspect]
     Active Substance: OSIMERTINIB
     Dosage: 40 MILLIGRAM, QD
  7. OSIMERTINIB [Suspect]
     Active Substance: OSIMERTINIB
     Dosage: 40 MILLIGRAM, QD
     Route: 048
  8. OSIMERTINIB [Suspect]
     Active Substance: OSIMERTINIB
     Dosage: 40 MILLIGRAM, QD
  9. OSIMERTINIB [Suspect]
     Active Substance: OSIMERTINIB
     Dosage: 80 MILLIGRAM, QD
     Route: 048
  10. OSIMERTINIB [Suspect]
     Active Substance: OSIMERTINIB
     Dosage: 80 MILLIGRAM, QD
  11. OSIMERTINIB [Suspect]
     Active Substance: OSIMERTINIB
     Dosage: 80 MILLIGRAM, QD
     Route: 048
  12. OSIMERTINIB [Suspect]
     Active Substance: OSIMERTINIB
     Dosage: 80 MILLIGRAM, QD
  13. MINOCYCLINE HYDROCHLORIDE [Concomitant]
     Active Substance: MINOCYCLINE HYDROCHLORIDE
     Dosage: DOSE UNKNOWN
  14. MINOCYCLINE HYDROCHLORIDE [Concomitant]
     Active Substance: MINOCYCLINE HYDROCHLORIDE
     Dosage: DOSE UNKNOWN
     Route: 048
  15. MINOCYCLINE HYDROCHLORIDE [Concomitant]
     Active Substance: MINOCYCLINE HYDROCHLORIDE
     Dosage: DOSE UNKNOWN
  16. MINOCYCLINE HYDROCHLORIDE [Concomitant]
     Active Substance: MINOCYCLINE HYDROCHLORIDE
     Dosage: DOSE UNKNOWN
     Route: 048
  17. PIRENOXINE [Concomitant]
     Active Substance: PIRENOXINE
     Dosage: DOSE UNKNOWN
     Route: 047
  18. PIRENOXINE [Concomitant]
     Active Substance: PIRENOXINE
     Dosage: DOSE UNKNOWN
  19. PIRENOXINE [Concomitant]
     Active Substance: PIRENOXINE
     Dosage: DOSE UNKNOWN
     Route: 047
  20. PIRENOXINE [Concomitant]
     Active Substance: PIRENOXINE
     Dosage: DOSE UNKNOWN
  21. PIRENOXINE [Concomitant]
     Active Substance: PIRENOXINE
     Dosage: DOSE UNKNOWN
     Route: 047
  22. PIRENOXINE [Concomitant]
     Active Substance: PIRENOXINE
     Dosage: DOSE UNKNOWN
  23. PIRENOXINE [Concomitant]
     Active Substance: PIRENOXINE
     Dosage: DOSE UNKNOWN
     Route: 047
  24. PIRENOXINE [Concomitant]
     Active Substance: PIRENOXINE
     Dosage: DOSE UNKNOWN

REACTIONS (5)
  - Blood creatine phosphokinase increased [Recovered/Resolved]
  - Muscular weakness [Recovered/Resolved]
  - Chromaturia [Recovered/Resolved]
  - Paronychia [Unknown]
  - Stomatitis [Unknown]
